FAERS Safety Report 11653768 (Version 1)
Quarter: 2015Q4

REPORT INFORMATION
  Report Type: Spontaneous
  Country: US (occurrence: US)
  Receive Date: 20151022
  Receipt Date: 20151022
  Transmission Date: 20160304
  Serious: Yes (Hospitalization)
  Sender: FDA-Public Use
  Company Number: US-MYLANLABS-2015M1035077

PATIENT

DRUGS (7)
  1. WARFARIN [Concomitant]
     Active Substance: WARFARIN
     Dosage: 5 MG, QD
     Route: 048
     Dates: start: 20150927
  2. OXYCODONE [Concomitant]
     Active Substance: OXYCODONE
     Indication: PAIN
     Dosage: UNK
     Route: 065
  3. ROCEPHIN [Concomitant]
     Active Substance: CEFTRIAXONE SODIUM
     Indication: PNEUMONIA
     Dosage: 1 G, QD FOR THREE DAYS
     Route: 042
     Dates: start: 20150924, end: 20150927
  4. FONDAPARINUX [Suspect]
     Active Substance: FONDAPARINUX
     Dosage: 75 MG, QD
     Route: 058
     Dates: start: 20150930
  5. LOVENOX [Suspect]
     Active Substance: ENOXAPARIN SODIUM
     Dosage: 80 MG, BID
     Route: 058
     Dates: start: 20150928, end: 20150930
  6. PERCOCET                           /00446701/ [Concomitant]
     Active Substance: ACETAMINOPHEN\OXYCODONE HYDROCHLORIDE\OXYCODONE TEREPHTHALATE
     Indication: PAIN
     Dosage: UNK
     Route: 065
  7. HEPARIN [Suspect]
     Active Substance: HEPARIN SODIUM
     Dosage: 18UNITS PER KG/HOUR
     Route: 042
     Dates: start: 201509, end: 20150928

REACTIONS (3)
  - Aspartate aminotransferase increased [Not Recovered/Not Resolved]
  - Alanine aminotransferase increased [Not Recovered/Not Resolved]
  - Heart rate increased [Not Recovered/Not Resolved]

NARRATIVE: CASE EVENT DATE: 201509
